FAERS Safety Report 21356851 (Version 5)
Quarter: 2022Q4

REPORT INFORMATION
  Report Type: Report from Study
  Country: DE (occurrence: DE)
  Receive Date: 20220920
  Receipt Date: 20221130
  Transmission Date: 20230113
  Serious: Yes (Hospitalization, Other)
  Sender: FDA-Public Use
  Company Number: DE-BRISTOL-MYERS SQUIBB COMPANY-2022-107527

PATIENT
  Age: 31 Year
  Sex: Male
  Weight: 71 kg

DRUGS (26)
  1. AZACITIDINE [Suspect]
     Active Substance: AZACITIDINE
     Indication: Ductal adenocarcinoma of pancreas
     Dosage: 30 MILLIGRAMS/M?, D -7 TO D -3 IN EACH CYCLE
     Route: 058
     Dates: start: 20220822, end: 20220826
  2. AZACITIDINE [Suspect]
     Active Substance: AZACITIDINE
     Dosage: 30 MILLIGRAMS/M?, D -7 TO D -3
     Route: 058
     Dates: start: 20220926, end: 20220927
  3. PACLITAXEL [Suspect]
     Active Substance: PACLITAXEL
     Indication: Ductal adenocarcinoma of pancreas
     Dosage: 125 MILLIGRAM/M? - ON DAY 1, DAY 8 AND DAY 15 IN EACH CYCLE
     Route: 042
     Dates: start: 20220830, end: 20220913
  4. PACLITAXEL [Suspect]
     Active Substance: PACLITAXEL
     Dosage: 125 MILLIGRAM/M?, D1, D8, D15
     Route: 042
     Dates: start: 20221006, end: 20221006
  5. GEMCITABINE [Suspect]
     Active Substance: GEMCITABINE
     Indication: Ductal adenocarcinoma of pancreas
     Dosage: 1000 MILLIGRAM/M?, ON D-1. D-8 AND D-15 ON EACH CYCLE
     Route: 042
     Dates: start: 20220830, end: 20220913
  6. GEMCITABINE [Suspect]
     Active Substance: GEMCITABINE
     Dosage: 1000 MILLIGRAM/M?, D1, D8, D15
     Route: 042
     Dates: start: 20221006, end: 20221006
  7. DULCOLAX (BISACODYL) [Concomitant]
     Active Substance: BISACODYL
     Indication: Subileus
     Dosage: 0-0-1
     Route: 048
     Dates: start: 20220825, end: 20220913
  8. DULCOLAX (BISACODYL) [Concomitant]
     Active Substance: BISACODYL
     Indication: Constipation
     Dates: start: 20221015, end: 20221015
  9. DULCOLAX (BISACODYL) [Concomitant]
     Active Substance: BISACODYL
     Dates: start: 20220919
  10. LEFAX [SIMETICONE] [Concomitant]
     Indication: Flatulence
     Dosage: AS NECESSARY
     Route: 048
     Dates: start: 20220830, end: 20220830
  11. LEFAX [SIMETICONE] [Concomitant]
     Route: 048
     Dates: start: 20221011, end: 20221019
  12. GRANISETRON [Concomitant]
     Active Substance: GRANISETRON
     Indication: Prophylaxis of nausea and vomiting
     Dosage: 1-0-0
     Route: 042
     Dates: start: 20220913, end: 20220913
  13. DEXAMETHASONE [Concomitant]
     Active Substance: DEXAMETHASONE
     Indication: Prophylaxis of nausea and vomiting
     Dosage: 1-0-0
     Route: 042
     Dates: start: 20220913, end: 20220913
  14. DEXAMETHASONE [Concomitant]
     Active Substance: DEXAMETHASONE
     Route: 042
     Dates: start: 20221007, end: 20221009
  15. DEXAMETHASONE [Concomitant]
     Active Substance: DEXAMETHASONE
     Route: 042
     Dates: start: 20221018, end: 20221020
  16. NOVALGIN (METAMIZOLE SODIUM) [Concomitant]
     Active Substance: METAMIZOLE SODIUM
     Indication: Pain
     Dosage: 1-1-1-1
     Route: 048
  17. LACTULOSE [Concomitant]
     Active Substance: LACTULOSE
     Indication: Subileus
     Dosage: 1-0-0
     Route: 048
  18. LACTULOSE [Concomitant]
     Active Substance: LACTULOSE
     Indication: Constipation prophylaxis
  19. MOVICOL [Concomitant]
     Active Substance: POLYETHYLENE GLYCOL 3350\POTASSIUM CHLORIDE\SODIUM BICARBONATE\SODIUM CHLORIDE
     Indication: Subileus
     Dosage: 3 X 13.8 GRAM IN 1 DAY
     Route: 048
     Dates: start: 20220906, end: 20220916
  20. MOVICOL [Concomitant]
     Active Substance: POLYETHYLENE GLYCOL 3350\POTASSIUM CHLORIDE\SODIUM BICARBONATE\SODIUM CHLORIDE
     Indication: Constipation prophylaxis
     Dosage: 1 X 13.8 GRAM IN 1 DAY
     Route: 048
     Dates: start: 20221016
  21. OXYCODONE [Concomitant]
     Active Substance: OXYCODONE
     Indication: Pain
     Dosage: 1-0-1
     Route: 048
     Dates: end: 20220913
  22. OXYCODONE [Concomitant]
     Active Substance: OXYCODONE
     Route: 065
  23. CARBOHYDRATES\FATTY ACIDS\MINERALS\PROTEIN\VITAMINS [Concomitant]
     Active Substance: CARBOHYDRATES\FATTY ACIDS\MINERALS\PROTEIN\VITAMINS
     Indication: Malnutrition
     Dosage: AS NECESSARY, 2 KCAL 100 ML
     Route: 048
     Dates: start: 20220822, end: 20220913
  24. CARBOHYDRATES\FATTY ACIDS\MINERALS\PROTEIN\VITAMINS [Concomitant]
     Active Substance: CARBOHYDRATES\FATTY ACIDS\MINERALS\PROTEIN\VITAMINS
     Dosage: AS NECESSARY
     Route: 048
     Dates: start: 20220825
  25. PANCRELIPASE [Concomitant]
     Active Substance: PANCRELIPASE
     Indication: Pancreatic enzyme abnormality
     Dosage: 12 X 25000 IU (INTERNATIONAL UNIT) IN 1 DAY
     Route: 048
     Dates: start: 20220830, end: 20220830
  26. PANCRELIPASE [Concomitant]
     Active Substance: PANCRELIPASE
     Dosage: 6 X 25000 IU (INTERNATIONAL UNIT) IN 1 DAY
     Route: 048
     Dates: start: 20221011

REACTIONS (1)
  - Pancreas infection [Recovered/Resolved]

NARRATIVE: CASE EVENT DATE: 20220915
